FAERS Safety Report 18368375 (Version 2)
Quarter: 2021Q3

REPORT INFORMATION
  Report Type: Report from Study
  Country: DE (occurrence: DE)
  Receive Date: 20201009
  Receipt Date: 20210812
  Transmission Date: 20211014
  Serious: Yes (Hospitalization)
  Sender: FDA-Public Use
  Company Number: DE-REGENERON PHARMACEUTICALS, INC.-2020-80063

PATIENT

DRUGS (8)
  1. LEVOTHYROXINE. [Concomitant]
     Active Substance: LEVOTHYROXINE
     Indication: HYPOTHYROIDISM
     Dosage: 50 UG, QD
     Route: 048
     Dates: start: 20200619, end: 20200930
  2. ADVANTAN MILK [Concomitant]
     Indication: PRURITUS
     Dosage: 1 APPLICATION, BID
     Route: 061
     Dates: start: 20200709, end: 20201001
  3. FEXOFENADIN [Concomitant]
     Active Substance: FEXOFENADINE HYDROCHLORIDE
     Indication: PRURITUS
     Dosage: 180 MG, BID
     Route: 048
     Dates: start: 20200709
  4. POLIDOCANOL. [Concomitant]
     Active Substance: POLIDOCANOL
     Indication: PRURITUS
     Dosage: 1 APPLICATION, PRN
     Route: 061
     Dates: start: 20200611
  5. EBASTIN [Concomitant]
     Active Substance: EBASTINE
     Indication: PRURITUS
     Dosage: 10 MG, QD
     Route: 048
     Dates: start: 20200611, end: 20201016
  6. NOVAMINSULFONE SODIUM [Concomitant]
     Active Substance: METAMIZOLE
     Indication: PAIN PROPHYLAXIS
     Dosage: 20 DROP, AS NECESSARY
     Route: 048
     Dates: start: 20200326
  7. CEMIPLIMAB [Suspect]
     Active Substance: CEMIPLIMAB
     Indication: SQUAMOUS CELL CARCINOMA OF SKIN
     Dosage: 350 MG, Q3W
     Route: 042
     Dates: start: 20200326, end: 20200908
  8. VALSARTAN. [Concomitant]
     Active Substance: VALSARTAN
     Indication: HYPERTENSION
     Dosage: 160 MG, QD
     Route: 048
     Dates: start: 2017, end: 20200930

REACTIONS (1)
  - Dermatitis bullous [Recovered/Resolved with Sequelae]

NARRATIVE: CASE EVENT DATE: 20201001
